FAERS Safety Report 13132923 (Version 2)
Quarter: 2017Q1

REPORT INFORMATION
  Report Type: Spontaneous
  Country: JP (occurrence: JP)
  Receive Date: 20170120
  Receipt Date: 20170217
  Transmission Date: 20170428
  Serious: Yes (Hospitalization, Disabling, Other)
  Sender: FDA-Public Use
  Company Number: JP-STRIDES ARCOLAB LIMITED-2017SP000527

PATIENT

DRUGS (2)
  1. TACROLIMUS. [Suspect]
     Active Substance: TACROLIMUS
     Indication: RHEUMATOID ARTHRITIS
     Dosage: 1.5 MCG PER DAY
  2. PREDNISOLONE. [Suspect]
     Active Substance: PREDNISOLONE
     Indication: RHEUMATOID ARTHRITIS
     Dosage: 10 MG PER DAY

REACTIONS (8)
  - Blindness [Unknown]
  - Endophthalmitis [Unknown]
  - Visual impairment [Unknown]
  - Eye pain [Unknown]
  - Pneumonia [Unknown]
  - Abdominal wall abscess [Recovered/Resolved]
  - Nocardiosis [Recovered/Resolved]
  - Swelling [Recovered/Resolved]
